FAERS Safety Report 9114041 (Version 2)
Quarter: 2013Q4

REPORT INFORMATION
  Report Type: Spontaneous
  Country: FR (occurrence: FR)
  Receive Date: 20130208
  Receipt Date: 20131021
  Transmission Date: 20140711
  Serious: Yes (Hospitalization)
  Sender: FDA-Public Use
  Company Number: FR-PFIZER INC-2013051260

PATIENT
  Age: 79 Year
  Sex: Male

DRUGS (3)
  1. TRIATEC [Suspect]
     Dosage: 1.25 MILLIGRAMS, UNK
     Route: 048
     Dates: start: 20130109, end: 20130113
  2. CARDENSIEL [Suspect]
     Dosage: 2.5 MG, DAILY
     Route: 048
     Dates: start: 20130111, end: 20130113
  3. TAZOCILLINE [Concomitant]
     Indication: BRONCHOPNEUMONIA
     Dosage: UNK
     Dates: start: 20121220, end: 20130114

REACTIONS (1)
  - Hepatitis cholestatic [Recovered/Resolved]
